FAERS Safety Report 4976845-6 (Version None)
Quarter: 2006Q2

REPORT INFORMATION
  Report Type: 
  Country: None (occurrence: None)
  Receive Date: 20060405
  Receipt Date: 20060322
  Transmission Date: 20061013
  Serious: Yes (Death)
  Sender: FDA-Public Use
  Company Number: THYM-10884

PATIENT
  Age: 47 Year
  Sex: Male
  Weight: 104.4 kg

DRUGS (8)
  1. THYMOGLOBULIN [Suspect]
     Indication: NON-HODGKIN'S LYMPHOMA
     Dosage: 1.5 MG/KG QOD IV
     Route: 042
     Dates: start: 20050914, end: 20050920
  2. ACYCLOVIR [Concomitant]
  3. FLAGYL [Concomitant]
  4. VANCOMYCIN [Concomitant]
  5. CASPOFUNGIN [Concomitant]
  6. GRANULOCYTE-MACROPHAGE COLONY STIMULATING FACTOR [Concomitant]
  7. LEVAQUIN [Concomitant]
  8. AZTREONAM [Concomitant]

REACTIONS (8)
  - COLLAPSE OF LUNG [None]
  - DEPRESSED LEVEL OF CONSCIOUSNESS [None]
  - DIARRHOEA [None]
  - DISEASE PROGRESSION [None]
  - HAEMOLYSIS [None]
  - INFECTION [None]
  - MULTI-ORGAN FAILURE [None]
  - RENAL FAILURE [None]
